FAERS Safety Report 6432339-2 (Version None)
Quarter: 2009Q4

REPORT INFORMATION
  Report Type: 
  Country: None (occurrence: None)
  Receive Date: 20091105
  Receipt Date: 20091022
  Transmission Date: 20100525
  Serious: Yes (Other)
  Sender: FDA-Public Use
  Company Number: 1000009781

PATIENT
  Age: 41 Year
  Sex: Male

DRUGS (5)
  1. ESCITALOPRAM [Suspect]
     Dosage: 10 MG (10 MG,1 IN 1 D),ORAL
     Route: 048
  2. LEXOMIL [Suspect]
     Dosage: 9 MG (9 MG,1 IN 1 D),ORAL
     Route: 048
  3. DEPAKOTE [Concomitant]
  4. TERCIAN [Concomitant]
  5. IXEL [Concomitant]

REACTIONS (1)
  - DRUG DEPENDENCE [None]
